FAERS Safety Report 5871328-3 (Version None)
Quarter: 2008Q3

REPORT INFORMATION
  Report Type: 
  Country: None (occurrence: None)
  Receive Date: 20080902
  Receipt Date: 20080603
  Transmission Date: 20090109
  Serious: Yes (Hospitalization, Other)
  Sender: FDA-Public Use
  Company Number: 2008S1005817

PATIENT
  Age: 64 Year
  Sex: Female

DRUGS (2)
  1. PHOSPHOSODA FLAVOR NOT SPECIFIED (SODIUM PHOSPHATE DIBASIC/SODIUM PHOS [Suspect]
     Indication: BOWEL PREPARATION
     Dosage: 45 ML;169;P0;UNK
     Route: 048
     Dates: start: 20080227, end: 20080227
  2. PHOSPHOSODA FLAVOR NOT SPECIFIED (SODIUM PHOSPHATE DIBASIC/SODIUM PHOS [Suspect]
     Indication: BOWEL PREPARATION
     Dosage: 45 ML;169;P0;UNK
     Route: 048
     Dates: start: 20080228, end: 20080228

REACTIONS (2)
  - NEPHROCALCINOSIS [None]
  - RENAL FAILURE [None]
